FAERS Safety Report 12056923 (Version 2)
Quarter: 2016Q1

REPORT INFORMATION
  Report Type: Spontaneous
  Country: JP (occurrence: JP)
  Receive Date: 20160209
  Receipt Date: 20160315
  Transmission Date: 20160526
  Serious: Yes (Hospitalization, Other)
  Sender: FDA-Public Use
  Company Number: JP-ABBVIE-16P-087-1553296-00

PATIENT
  Age: 78 Year
  Sex: Female
  Weight: 47 kg

DRUGS (11)
  1. RABEPRAZOLE SODIUM. [Concomitant]
     Active Substance: RABEPRAZOLE SODIUM
     Indication: GASTRITIS EROSIVE
     Route: 048
     Dates: start: 20120626
  2. SPIRONOLACTONE. [Interacting]
     Active Substance: SPIRONOLACTONE
     Indication: CARDIAC FAILURE
     Route: 048
     Dates: start: 20121206, end: 20160202
  3. RABEPRAZOLE SODIUM. [Concomitant]
     Active Substance: RABEPRAZOLE SODIUM
     Indication: GASTROOESOPHAGEAL REFLUX DISEASE
  4. METILDIGOXIN [Concomitant]
     Active Substance: METILDIGOXIN
     Indication: CARDIAC FAILURE
     Route: 048
     Dates: start: 20121206, end: 20160202
  5. WARFARIN POTASSIUM TOWA [Suspect]
     Active Substance: WARFARIN POTASSIUM
     Indication: ATRIAL FIBRILLATION
  6. FEBUXOSTAT. [Concomitant]
     Active Substance: FEBUXOSTAT
     Indication: HYPERURICAEMIA
     Route: 048
     Dates: start: 20120720, end: 20160202
  7. VALSARTAN. [Concomitant]
     Active Substance: VALSARTAN
     Indication: HYPERTENSION
     Route: 048
     Dates: start: 20121206, end: 20160202
  8. VIEKIRAX [Interacting]
     Active Substance: OMBITASVIR\PARITAPREVIR\RITONAVIR
     Indication: CHRONIC HEPATITIS C
     Route: 048
     Dates: start: 20160106, end: 20160202
  9. FUROSEMIDE. [Interacting]
     Active Substance: FUROSEMIDE
     Indication: CARDIAC FAILURE
     Route: 048
     Dates: start: 20121206, end: 20160202
  10. WARFARIN POTASSIUM TOWA [Suspect]
     Active Substance: WARFARIN POTASSIUM
     Indication: ARTERIAL THROMBOSIS
     Route: 048
     Dates: start: 20121206
  11. ASPIRIN. [Concomitant]
     Active Substance: ASPIRIN
     Indication: ARTERIAL OCCLUSIVE DISEASE
     Route: 048
     Dates: start: 20121206

REACTIONS (7)
  - Drug interaction [Unknown]
  - Liver disorder [Recovered/Resolved]
  - Decreased appetite [Unknown]
  - Renal disorder [Recovered/Resolved]
  - Asthenia [Unknown]
  - Hyperkalaemia [Recovered/Resolved]
  - Coagulopathy [Recovered/Resolved]

NARRATIVE: CASE EVENT DATE: 20160130
